FAERS Safety Report 9324564 (Version 2)
Quarter: 2014Q2

REPORT INFORMATION
  Report Type: Spontaneous
  Country: US (occurrence: US)
  Receive Date: 20130603
  Receipt Date: 20140418
  Transmission Date: 20141212
  Serious: Yes (Hospitalization)
  Sender: FDA-Public Use
  Company Number: US-B.I. PHARMACEUTICALS,INC./RIDGEFIELD-2013-BI-15304BP

PATIENT
  Sex: Male
  Weight: 74.84 kg

DRUGS (7)
  1. PRADAXA [Suspect]
     Indication: PRODUCT USED FOR UNKNOWN INDICATION
     Dosage: 300 MG
     Route: 048
     Dates: start: 20110110, end: 20120206
  2. MULTIVITAMINS [Concomitant]
     Route: 065
  3. CARDIZEM CD [Concomitant]
     Dosage: 120 MG
     Route: 065
     Dates: start: 2010, end: 2012
  4. LISINOPRIL [Concomitant]
     Dosage: 5 MG
     Route: 065
     Dates: start: 2010, end: 2012
  5. AMIODARONE [Concomitant]
     Dosage: 200 MG
     Route: 065
     Dates: start: 2010, end: 2013
  6. PRAVACHOL [Concomitant]
     Dosage: 40 MG
     Route: 065
     Dates: start: 2008
  7. ASPIRIN [Concomitant]
     Dosage: 325 MG
     Route: 065

REACTIONS (2)
  - Gastrointestinal haemorrhage [Unknown]
  - Haemorrhagic anaemia [Unknown]
